FAERS Safety Report 8590746-6 (Version None)
Quarter: 2012Q3

REPORT INFORMATION
  Report Type: 
  Country: None (occurrence: None)
  Receive Date: 20120813
  Receipt Date: 20120802
  Transmission Date: 20120928
  Serious: Yes (Hospitalization)
  Sender: FDA-Public Use
  Company Number: JP-009507513-1208JPN001358

PATIENT

DRUGS (12)
  1. PLAVIX [Concomitant]
     Dosage: 75 MG, ONCE
  2. PRAVASTATIN SODIUM [Concomitant]
     Dosage: 10 MG, ONCE
     Route: 048
  3. MAGMITT [Concomitant]
     Dosage: 500 MG, UNK
     Route: 048
  4. JANUVIA [Suspect]
     Indication: DIABETES MELLITUS
     Dosage: UNK
     Route: 048
     Dates: start: 20120718, end: 20120701
  5. TRAMADOL HCL [Concomitant]
     Route: 048
  6. OLOPATADINE HCL [Concomitant]
     Dosage: 10 MG, UNK
     Route: 048
  7. SODIUM FERROUS CITRATE [Concomitant]
     Dosage: 50 MG, UNK
     Route: 048
  8. LANSOPRAZOLE [Concomitant]
     Dosage: 30 MG, UNK
     Route: 048
  9. METOCLOPRAMIDE [Concomitant]
     Route: 048
  10. JANUVIA [Suspect]
     Dosage: UNK
     Route: 048
     Dates: start: 20120801, end: 20120802
  11. ASPIRIN [Concomitant]
     Dosage: 100 MG, ONCE
     Route: 048
  12. EDIROL [Concomitant]
     Dosage: 0.75 MG, UNK
     Route: 048

REACTIONS (1)
  - ILEUS [None]
